FAERS Safety Report 10289467 (Version 2)
Quarter: 2014Q4

REPORT INFORMATION
  Report Type: Spontaneous
  Country: FR (occurrence: FR)
  Receive Date: 20140710
  Receipt Date: 20141017
  Transmission Date: 20150528
  Serious: Yes (Life-Threatening, Hospitalization)
  Sender: FDA-Public Use
  Company Number: FR-BRISTOL-MYERS SQUIBB COMPANY-21162953

PATIENT
  Age: 66 Year
  Sex: Male

DRUGS (6)
  1. NOVOMIX [Concomitant]
     Active Substance: INSULIN ASPART
     Indication: TYPE 2 DIABETES MELLITUS
     Route: 058
     Dates: start: 201101, end: 201304
  2. PROPRANOLOL [Concomitant]
     Active Substance: PROPRANOLOL\PROPRANOLOL HYDROCHLORIDE
     Indication: CIRRHOSIS ALCOHOLIC
     Route: 048
     Dates: start: 20040923
  3. SPIRONOLACTONE. [Concomitant]
     Active Substance: SPIRONOLACTONE
     Indication: CIRRHOSIS ALCOHOLIC
     Route: 048
     Dates: start: 20041130
  4. BYETTA [Suspect]
     Active Substance: EXENATIDE
     Indication: TYPE 2 DIABETES MELLITUS
     Route: 058
     Dates: start: 20090415, end: 201101
  5. GLIBENCLAMIDE [Suspect]
     Active Substance: GLYBURIDE
     Indication: TYPE 2 DIABETES MELLITUS
     Dosage: 20OCT08-15APR09:5MG,TID?15APR09-JAN2011:2.5MG,TID
     Route: 048
     Dates: start: 20081020
  6. OMEPRAZOLE. [Concomitant]
     Active Substance: OMEPRAZOLE
     Indication: CIRRHOSIS ALCOHOLIC
     Route: 048
     Dates: start: 20041116, end: 2011

REACTIONS (5)
  - Jaundice [Recovered/Resolved with Sequelae]
  - Bile duct stenosis [Recovered/Resolved with Sequelae]
  - Cholangiocarcinoma [Recovered/Resolved with Sequelae]
  - Cholangitis acute [Recovered/Resolved with Sequelae]
  - Cholestasis [Recovered/Resolved with Sequelae]

NARRATIVE: CASE EVENT DATE: 201009
